FAERS Safety Report 16122000 (Version 1)
Quarter: 2019Q2

REPORT INFORMATION
  Report Type: Spontaneous
  Country: US (occurrence: US)
  Receive Date: 20190326
  Receipt Date: 20190326
  Transmission Date: 20190711
  Serious: Yes (Hospitalization)
  Sender: FDA-Public Use
  Company Number: None

PATIENT
  Age: 78 Year
  Sex: Female

DRUGS (8)
  1. CAPECITABINE. [Concomitant]
     Active Substance: CAPECITABINE
     Indication: COLON CANCER
     Dosage: ?          OTHER FREQUENCY:TOTAL DAILY DOSE;?
     Route: 048
     Dates: start: 20190213
  2. MONTELUKAST [Concomitant]
     Active Substance: MONTELUKAST SODIUM
  3. POTASSIUM CL [Concomitant]
     Active Substance: POTASSIUM CHLORIDE
  4. IRINOTECAN [Concomitant]
     Active Substance: IRINOTECAN
  5. HYDROCHLOROTHIAZIDE. [Concomitant]
     Active Substance: HYDROCHLOROTHIAZIDE
  6. AMLODIPINE [Concomitant]
     Active Substance: AMLODIPINE BESYLATE
  7. ZOLPIDEM [Concomitant]
     Active Substance: ZOLPIDEM\ZOLPIDEM TARTRATE
  8. OXAPLATIN [Suspect]
     Active Substance: OXALIPLATIN

REACTIONS (2)
  - Drug hypersensitivity [None]
  - Therapy cessation [None]

NARRATIVE: CASE EVENT DATE: 20190315
